FAERS Safety Report 9249806 (Version 1)
Quarter: 2013Q2

REPORT INFORMATION
  Report Type: Spontaneous
  Country: US (occurrence: US)
  Receive Date: 20130423
  Receipt Date: 20130423
  Transmission Date: 20140414
  Serious: Yes (Death, Other)
  Sender: FDA-Public Use
  Company Number: US-SANOFI-AVENTIS-2013SA041242

PATIENT
  Sex: Female

DRUGS (4)
  1. TAXOTERE [Suspect]
     Indication: BREAST CANCER
     Dates: end: 2012
  2. PROGETA [Concomitant]
  3. HERCEPTIN [Concomitant]
  4. MAGNESIUM/POTASSIUM [Concomitant]

REACTIONS (4)
  - Death [Fatal]
  - Injection site cellulitis [Recovered/Resolved]
  - Injection site discolouration [Recovered/Resolved]
  - Injection site extravasation [Recovered/Resolved]
